FAERS Safety Report 12159122 (Version 2)
Quarter: 2017Q1

REPORT INFORMATION
  Report Type: Spontaneous
  Country: US (occurrence: US)
  Receive Date: 20160308
  Receipt Date: 20170306
  Transmission Date: 20170428
  Serious: No
  Sender: FDA-Public Use
  Company Number: US-GLENMARK PHARMACEUTICALS INC, USA.-2015GMK016652

PATIENT

DRUGS (5)
  1. PROGESTERONE. [Concomitant]
     Active Substance: PROGESTERONE
     Indication: HAEMORRHAGE
     Dosage: UNK
     Route: 065
     Dates: start: 20151225
  2. ESTRADIOL. [Concomitant]
     Active Substance: ESTRADIOL
     Indication: HAEMORRHAGE
     Dosage: UNK
     Route: 065
     Dates: start: 20151225
  3. VITAMINS                           /00067501/ [Concomitant]
     Active Substance: VITAMINS
     Indication: PRODUCT USED FOR UNKNOWN INDICATION
     Dosage: UNK
     Route: 065
  4. ALYACEN 1/35 [Suspect]
     Active Substance: ETHINYL ESTRADIOL\NORETHINDRONE
     Dosage: UNK, QD
     Route: 048
     Dates: start: 201503, end: 201512
  5. ALYACEN 1/35 [Suspect]
     Active Substance: ETHINYL ESTRADIOL\NORETHINDRONE
     Indication: MENORRHAGIA
     Dosage: UNK UNK, QD
     Route: 048
     Dates: start: 201312, end: 201412

REACTIONS (4)
  - Carpal tunnel syndrome [Not Recovered/Not Resolved]
  - Product use issue [Unknown]
  - Irritability [Unknown]
  - Product substitution issue [Unknown]

NARRATIVE: CASE EVENT DATE: 201501
